FAERS Safety Report 8839880 (Version 1)
Quarter: 2012Q4

REPORT INFORMATION
  Report Type: 
  Country: US (occurrence: US)
  Receive Date: 20121015
  Receipt Date: 20121015
  Transmission Date: 20130627
  Serious: Yes (Hospitalization)
  Sender: FDA-Public Use
  Company Number: US-ABBOTT-12P-163-0993967-00

PATIENT
  Age: 77 Year
  Sex: Male
  Weight: 72.64 kg

DRUGS (1)
  1. BIAXIN [Suspect]
     Indication: GASTRIC DISORDER
     Dates: start: 20121006, end: 20121007

REACTIONS (2)
  - Abasia [Recovered/Resolved]
  - Blood glucose decreased [Recovered/Resolved]
